FAERS Safety Report 9013392 (Version 1)
Quarter: 2013Q1

REPORT INFORMATION
  Report Type: Spontaneous
  Country: US (occurrence: US)
  Receive Date: 20130114
  Receipt Date: 20130114
  Transmission Date: 20140127
  Serious: Yes (Hospitalization)
  Sender: FDA-Public Use
  Company Number: US-BAYER-2013-003847

PATIENT
  Age: 30 Year
  Sex: Female

DRUGS (5)
  1. YAZ [Suspect]
  2. GIANVI [Suspect]
  3. VITAMINS [Concomitant]
     Dosage: UNK
     Dates: start: 20111013
  4. FERROUS SULFATE [Concomitant]
     Indication: ANAEMIA
  5. HYDROCODONE W/ACETAMINOPHEN [Concomitant]
     Indication: PAIN

REACTIONS (1)
  - Pulmonary embolism [None]
